FAERS Safety Report 9769332 (Version 1)
Quarter: 2013Q4

REPORT INFORMATION
  Report Type: Spontaneous
  Country: DE (occurrence: DE)
  Receive Date: 20131218
  Receipt Date: 20131218
  Transmission Date: 20140711
  Serious: Yes (Other)
  Sender: FDA-Public Use
  Company Number: PHHY2013DE146875

PATIENT
  Age: 3 Year
  Sex: Male

DRUGS (9)
  1. SANDIMMUN [Suspect]
     Indication: NEPHRITIS
     Dosage: 50-60 MG DAILY
     Route: 048
     Dates: start: 201308
  2. SANDIMMUN [Interacting]
     Dosage: 90 MG, UNK
     Route: 048
     Dates: start: 2013
  3. SANDIMMUN [Interacting]
     Dosage: 70 MG, UNK
     Route: 048
  4. OMACOR [Interacting]
  5. METOPROLOL [Concomitant]
  6. NIFEHEXAL [Concomitant]
  7. NEPRESSOL [Concomitant]
  8. FUROSEMIDE [Concomitant]
  9. ENDOXAN [Concomitant]
     Indication: NEPHRITIS
     Dates: start: 2013

REACTIONS (4)
  - Drug interaction [Not Recovered/Not Resolved]
  - Hypoalbuminaemia [Not Recovered/Not Resolved]
  - Immunosuppressant drug level decreased [Not Recovered/Not Resolved]
  - Immunosuppressant drug level increased [Unknown]
